FAERS Safety Report 17356106 (Version 1)
Quarter: 2020Q1

REPORT INFORMATION
  Report Type: Spontaneous
  Country: SG (occurrence: SG)
  Receive Date: 20200131
  Receipt Date: 20200131
  Transmission Date: 20200409
  Serious: Yes (Other)
  Sender: FDA-Public Use
  Company Number: SG-TOLMAR, INC.-20SG020172

PATIENT
  Age: 37 Year
  Sex: Female

DRUGS (1)
  1. ELIGARD [Suspect]
     Active Substance: LEUPROLIDE ACETATE
     Indication: BENIGN PERITONEAL NEOPLASM
     Route: 065

REACTIONS (2)
  - Off label use [Unknown]
  - Benign peritoneal neoplasm [Unknown]
